FAERS Safety Report 13746958 (Version 1)
Quarter: 2017Q3

REPORT INFORMATION
  Report Type: Spontaneous
  Country: HK (occurrence: HK)
  Receive Date: 20170712
  Receipt Date: 20170712
  Transmission Date: 20171127
  Serious: Yes (Congenital Anomaly, Other)
  Sender: FDA-Public Use
  Company Number: HK-MYLANLABS-2017M1040568

PATIENT

DRUGS (1)
  1. CLARITHROMYCIN. [Suspect]
     Active Substance: CLARITHROMYCIN
     Indication: PRODUCT USED FOR UNKNOWN INDICATION
     Dosage: FROM GESTATION DAY 11 TO DAY 17
     Route: 064

REACTIONS (2)
  - Sirenomelia [Not Recovered/Not Resolved]
  - Foetal exposure during pregnancy [Unknown]
